FAERS Safety Report 8363271-5 (Version None)
Quarter: 2012Q2

REPORT INFORMATION
  Report Type: 
  Country: None (occurrence: None)
  Receive Date: 20120516
  Receipt Date: 20120427
  Transmission Date: 20120825
  Serious: Yes (Other)
  Sender: FDA-Public Use
  Company Number: FR-SANOFI-AVENTIS-2012SA029651

PATIENT
  Age: 66 Year
  Sex: Male

DRUGS (5)
  1. CABAZITAXEL [Suspect]
     Indication: PROSTATE CANCER METASTATIC
     Route: 042
     Dates: start: 20120203, end: 20120203
  2. PREDNISONE [Suspect]
     Indication: PROSTATE CANCER METASTATIC
     Route: 048
     Dates: start: 20120203, end: 20120424
  3. ESOMEPRAZOLE MAGNESIUM [Concomitant]
     Indication: PROPHYLAXIS
     Route: 048
     Dates: start: 20120203
  4. CABAZITAXEL [Suspect]
     Route: 042
     Dates: start: 20120406, end: 20120406
  5. ACETAMINOPHEN [Concomitant]
     Indication: DRUG THERAPY
     Route: 048
     Dates: start: 20120108

REACTIONS (1)
  - PULMONARY EMBOLISM [None]
